FAERS Safety Report 13292415 (Version 1)
Quarter: 2017Q1

REPORT INFORMATION
  Report Type: Spontaneous
  Country: JP (occurrence: JP)
  Receive Date: 20170303
  Receipt Date: 20170303
  Transmission Date: 20170428
  Serious: Yes (Hospitalization)
  Sender: FDA-Public Use
  Company Number: JP-TEVA-744214ISR

PATIENT
  Age: 78 Year
  Sex: Male

DRUGS (12)
  1. WARFARIN [Concomitant]
     Active Substance: WARFARIN
     Route: 065
  2. RANITIDINE. [Concomitant]
     Active Substance: RANITIDINE
     Route: 065
  3. CARVEDILOL. [Interacting]
     Active Substance: CARVEDILOL
     Indication: HYPERTENSION
     Route: 065
  4. IRBESARTAN. [Concomitant]
     Active Substance: IRBESARTAN
     Route: 065
  5. DIPYRIDAMOLE. [Concomitant]
     Active Substance: DIPYRIDAMOLE
     Route: 065
  6. CLARITHROMYCIN. [Interacting]
     Active Substance: CLARITHROMYCIN
     Indication: ANTIBIOTIC THERAPY
     Route: 065
  7. AZOSEMIDE [Concomitant]
     Active Substance: AZOSEMIDE
     Route: 065
  8. SITAGLIPTIN [Concomitant]
     Active Substance: SITAGLIPTIN
     Route: 065
  9. SODIUM FERROUS CITRATE [Concomitant]
     Active Substance: SODIUM FERROUS CITRATE
     Route: 065
  10. DILTIAZEM. [Interacting]
     Active Substance: DILTIAZEM
     Indication: HYPERTENSION
     Route: 065
  11. NIFEDIPINE. [Suspect]
     Active Substance: NIFEDIPINE
     Indication: HYPERTENSION
     Route: 065
  12. ISOSORBIDE DINITRATE. [Concomitant]
     Active Substance: ISOSORBIDE DINITRATE
     Route: 065

REACTIONS (4)
  - Hypotension [Recovered/Resolved]
  - Bradycardia [Recovered/Resolved]
  - Drug interaction [Unknown]
  - Cardiac output decreased [Recovered/Resolved]
